FAERS Safety Report 21297274 (Version 1)
Quarter: 2022Q3

REPORT INFORMATION
  Report Type: Spontaneous
  Country: US (occurrence: None)
  Receive Date: 20220902
  Receipt Date: 20220902
  Transmission Date: 20221027
  Serious: No
  Sender: FDA-Public Use
  Company Number: None

PATIENT
  Age: 73 Year
  Sex: Male

DRUGS (1)
  1. CEFEPIME HYDROCHLORIDE [Suspect]
     Active Substance: CEFEPIME HYDROCHLORIDE
     Indication: Otitis externa
     Dosage: 2 GM BID?
     Dates: start: 20220706, end: 20220706

REACTIONS (4)
  - Rash [None]
  - Nausea [None]
  - Vomiting [None]
  - Angioedema [None]

NARRATIVE: CASE EVENT DATE: 20220706
